FAERS Safety Report 6294100-1 (Version None)
Quarter: 2009Q3

REPORT INFORMATION
  Report Type: 
  Country: None (occurrence: None)
  Receive Date: 20090803
  Receipt Date: 20081114
  Transmission Date: 20100115
  Serious: No
  Sender: FDA-Public Use
  Company Number: A0755527A

PATIENT
  Age: 48 Year
  Sex: Male

DRUGS (1)
  1. NICORETTE [Suspect]

REACTIONS (6)
  - ABDOMINAL DISCOMFORT [None]
  - DRUG INEFFECTIVE [None]
  - HYPERCHLORHYDRIA [None]
  - INTENTIONAL DRUG MISUSE [None]
  - NICOTINE DEPENDENCE [None]
  - THROAT IRRITATION [None]
